FAERS Safety Report 12115477 (Version 2)
Quarter: 2016Q4

REPORT INFORMATION
  Report Type: Spontaneous
  Country: US (occurrence: US)
  Receive Date: 20160225
  Receipt Date: 20161122
  Transmission Date: 20170206
  Serious: No
  Sender: FDA-Public Use
  Company Number: US-MYLANLABS-2015M1047725

PATIENT
  Age: 57 Year
  Sex: Female

DRUGS (2)
  1. ALPRAZOLAM MYLAN [Suspect]
     Active Substance: ALPRAZOLAM
     Indication: RESTLESS LEGS SYNDROME
     Dosage: 1 MG, QD
     Route: 048
     Dates: start: 201512
  2. ALPRAZOLAM MYLAN [Suspect]
     Active Substance: ALPRAZOLAM
     Indication: OFF LABEL USE

REACTIONS (3)
  - Alopecia [Not Recovered/Not Resolved]
  - Rash [Not Recovered/Not Resolved]
  - Constipation [Not Recovered/Not Resolved]

NARRATIVE: CASE EVENT DATE: 201512
